FAERS Safety Report 26085910 (Version 2)
Quarter: 2025Q4

REPORT INFORMATION
  Report Type: Spontaneous
  Country: US (occurrence: US)
  Receive Date: 20251125
  Receipt Date: 20251208
  Transmission Date: 20260118
  Serious: No
  Sender: GILEAD
  Company Number: US-GILEAD-2025-0737543

PATIENT
  Age: 59 Year
  Sex: Male
  Weight: 89.5 kg

DRUGS (10)
  1. YEZTUGO [Suspect]
     Active Substance: LENACAPAVIR SODIUM
     Indication: Prophylaxis against HIV infection
     Dosage: 927 MG
     Route: 058
     Dates: start: 20251030
  2. YEZTUGO [Suspect]
     Active Substance: LENACAPAVIR SODIUM
     Indication: Prophylaxis against HIV infection
     Dosage: 300 MG,PER TABLET (600MG TOTAL DOSE)
     Route: 065
     Dates: start: 20251030, end: 20251031
  3. BUPROPION [Concomitant]
     Active Substance: BUPROPION
  4. VITAMIN B12 [Concomitant]
     Active Substance: CYANOCOBALAMIN
  5. ESCITALOPRAM [Concomitant]
     Active Substance: ESCITALOPRAM OXALATE
  6. OMEPRAZOLE [Concomitant]
     Active Substance: OMEPRAZOLE
  7. ROSUVASTATIN [Concomitant]
     Active Substance: ROSUVASTATIN
  8. SILDENAFIL [Concomitant]
     Active Substance: SILDENAFIL
  9. TIRZEPATIDE [Concomitant]
     Active Substance: TIRZEPATIDE
  10. TRAZODONE [Concomitant]
     Active Substance: TRAZODONE HYDROCHLORIDE

REACTIONS (2)
  - Injection site nodule [Unknown]
  - Product administered at inappropriate site [Recovered/Resolved]

NARRATIVE: CASE EVENT DATE: 20251030
